FAERS Safety Report 17716974 (Version 1)
Quarter: 2020Q2

REPORT INFORMATION
  Report Type: Spontaneous
  Country: US (occurrence: US)
  Receive Date: 20200428
  Receipt Date: 20200428
  Transmission Date: 20200714
  Serious: No
  Sender: FDA-Public Use
  Company Number: US-TEVA-2020-US-1194467

PATIENT
  Sex: Male

DRUGS (1)
  1. VENLAFAXINE [Suspect]
     Active Substance: VENLAFAXINE HYDROCHLORIDE
     Indication: ANTIDEPRESSANT THERAPY
     Route: 065

REACTIONS (24)
  - Dry mouth [Unknown]
  - Agitation [Unknown]
  - Asthenia [Unknown]
  - Anal incontinence [Unknown]
  - Nausea [Unknown]
  - Headache [Unknown]
  - Nervousness [Unknown]
  - Paraesthesia [Unknown]
  - Abnormal dreams [Unknown]
  - Flatulence [Unknown]
  - Constipation [Unknown]
  - Libido decreased [Unknown]
  - Hyperhidrosis [Unknown]
  - Insomnia [Unknown]
  - Fatigue [Unknown]
  - Diarrhoea [Unknown]
  - Dyspepsia [Unknown]
  - Decreased appetite [Unknown]
  - Abdominal pain upper [Unknown]
  - Coordination abnormal [Unknown]
  - Chills [Unknown]
  - Weight decreased [Unknown]
  - Burning sensation [Unknown]
  - Urinary incontinence [Unknown]
